FAERS Safety Report 15412808 (Version 2)
Quarter: 2018Q4

REPORT INFORMATION
  Report Type: Report from Study
  Country: US (occurrence: US)
  Receive Date: 20180921
  Receipt Date: 20181027
  Transmission Date: 20190204
  Serious: No
  Sender: FDA-Public Use
  Company Number: PHEH2018US039224

PATIENT
  Age: 37 Year
  Sex: Female

DRUGS (2)
  1. COSENTYX [Suspect]
     Active Substance: SECUKINUMAB
     Indication: PSORIASIS
  2. COSENTYX [Suspect]
     Active Substance: SECUKINUMAB
     Indication: ANKYLOSING SPONDYLITIS
     Dosage: 300 MG, QMO
     Route: 058
     Dates: start: 20180910

REACTIONS (4)
  - Product storage error [Unknown]
  - Dysmenorrhoea [Unknown]
  - Metrorrhagia [Unknown]
  - Memory impairment [Unknown]

NARRATIVE: CASE EVENT DATE: 20180910
